FAERS Safety Report 24021512 (Version 2)
Quarter: 2024Q3

REPORT INFORMATION
  Report Type: Spontaneous
  Country: US (occurrence: US)
  Receive Date: 20240627
  Receipt Date: 20240710
  Transmission Date: 20241016
  Serious: No
  Sender: ROCHE
  Company Number: US-ROCHE-3538078

PATIENT
  Age: 78 Year
  Sex: Female
  Weight: 109.77 kg

DRUGS (2)
  1. VABYSMO [Suspect]
     Active Substance: FARICIMAB\FARICIMAB-SVOA
     Indication: Dry age-related macular degeneration
     Route: 050
     Dates: start: 202310
  2. VABYSMO [Suspect]
     Active Substance: FARICIMAB\FARICIMAB-SVOA
     Route: 065
     Dates: start: 20240404

REACTIONS (15)
  - Eye disorder [Not Recovered/Not Resolved]
  - Balance disorder [Not Recovered/Not Resolved]
  - Grip strength decreased [Not Recovered/Not Resolved]
  - Headache [Not Recovered/Not Resolved]
  - Visual impairment [Not Recovered/Not Resolved]
  - Fall [Unknown]
  - Memory impairment [Unknown]
  - Malaise [Unknown]
  - Dysgeusia [Unknown]
  - Blepharospasm [Unknown]
  - Cerebral disorder [Unknown]
  - Dementia [Unknown]
  - Rash [Unknown]
  - Oral pain [Unknown]
  - Off label use [Unknown]
